FAERS Safety Report 8196931-X (Version None)
Quarter: 2012Q1

REPORT INFORMATION
  Report Type: 
  Country: None (occurrence: None)
  Receive Date: 20120309
  Receipt Date: 20120305
  Transmission Date: 20120608
  Serious: Yes (Disabling)
  Sender: FDA-Public Use
  Company Number: BR-BAYER-2011-093138

PATIENT
  Age: 44 Year
  Sex: Female
  Weight: 56 kg

DRUGS (2)
  1. DIANE [Suspect]
     Indication: CONTRACEPTION
     Dosage: 1 DF, 21D/7D
     Route: 048
     Dates: start: 20030101, end: 20110901
  2. DIANE [Suspect]
     Indication: SKIN DISORDER

REACTIONS (3)
  - DEAFNESS UNILATERAL [None]
  - MIGRAINE [None]
  - HEADACHE [None]
